FAERS Safety Report 7815056-3 (Version None)
Quarter: 2011Q4

REPORT INFORMATION
  Report Type: 
  Country: None (occurrence: None)
  Receive Date: 20111014
  Receipt Date: 20110930
  Transmission Date: 20120403
  Serious: Yes (Other)
  Sender: FDA-Public Use
  Company Number: BE-ELI_LILLY_AND_COMPANY-BE201108006441

PATIENT
  Sex: Female
  Weight: 73 kg

DRUGS (5)
  1. FORTEO [Suspect]
     Indication: OSTEOPOROSIS
     Dosage: UNK UNK, QD
     Route: 058
     Dates: start: 20101101
  2. BETAHISTINE DIHYDROCHLORIDE [Concomitant]
  3. MAGNESIUM [Concomitant]
  4. STEOVIT D3 [Concomitant]
  5. PANTOPRAZOLE [Concomitant]

REACTIONS (3)
  - FLUSHING [None]
  - ARRHYTHMIA [None]
  - ARTERIOSCLEROSIS [None]
